FAERS Safety Report 23571271 (Version 1)
Quarter: 2024Q1

REPORT INFORMATION
  Report Type: Spontaneous
  Country: US (occurrence: US)
  Receive Date: 20240227
  Receipt Date: 20240227
  Transmission Date: 20240410
  Serious: No
  Sender: FDA-Public Use
  Company Number: US-GILEAD-2024-0663337

PATIENT
  Age: 56 Year
  Sex: Female

DRUGS (6)
  1. LENACAPAVIR [Suspect]
     Active Substance: LENACAPAVIR
     Indication: HIV infection
     Dosage: 927MG
     Route: 065
     Dates: start: 20231102
  2. CALCITRIOL [Concomitant]
     Active Substance: CALCITRIOL
  3. CALCIUM CARBONATE [Concomitant]
     Active Substance: CALCIUM CARBONATE
  4. CARVEDILOL [Concomitant]
     Active Substance: CARVEDILOL
  5. DOCUSATE [Concomitant]
     Active Substance: DOCUSATE
  6. DOLUTEGRAVIR SODIUM\LAMIVUDINE [Concomitant]
     Active Substance: DOLUTEGRAVIR SODIUM\LAMIVUDINE

REACTIONS (2)
  - Injection site pain [Unknown]
  - Injection site nodule [Not Recovered/Not Resolved]

NARRATIVE: CASE EVENT DATE: 20231102
